FAERS Safety Report 8336052-6 (Version None)
Quarter: 2012Q1

REPORT INFORMATION
  Report Type: 
  Country: None (occurrence: None)
  Receive Date: 20120329
  Receipt Date: 20090616
  Transmission Date: 20120608
  Serious: Yes (Other)
  Sender: FDA-Public Use
  Company Number: PHEH2009US01115

PATIENT
  Sex: Male

DRUGS (4)
  1. EXELON [Suspect]
     Dosage: 4.6MG, TRANSDERMAL
     Route: 062
     Dates: start: 20090108
  2. ENALAPRIL MALEATE [Concomitant]
  3. EXELON [Suspect]
  4. VALIUM [Concomitant]

REACTIONS (6)
  - DEPRESSION [None]
  - WEIGHT DECREASED [None]
  - VOMITING [None]
  - MALAISE [None]
  - DIARRHOEA [None]
  - CONFUSIONAL STATE [None]
